FAERS Safety Report 5110339-2 (Version None)
Quarter: 2006Q3

REPORT INFORMATION
  Report Type: 
  Country: None (occurrence: None)
  Receive Date: 20060731
  Receipt Date: 20060626
  Transmission Date: 20061208
  Serious: No
  Sender: FDA-Public Use
  Company Number: 2006PV016387

PATIENT
  Age: 62 Year
  Sex: Male
  Weight: 92.0802 kg

DRUGS (3)
  1. BYETTA [Suspect]
     Indication: DIABETES MELLITUS NON-INSULIN-DEPENDENT
     Dosage: SEE IMAGE
     Route: 058
     Dates: start: 20060516, end: 20060615
  2. BYETTA [Suspect]
     Indication: DIABETES MELLITUS NON-INSULIN-DEPENDENT
     Dosage: SEE IMAGE
     Route: 058
     Dates: start: 20060616
  3. METFORMIN HCL [Concomitant]

REACTIONS (6)
  - AMNESIA [None]
  - BLOOD GLUCOSE DECREASED [None]
  - DECREASED APPETITE [None]
  - FEELING JITTERY [None]
  - PARAESTHESIA [None]
  - WEIGHT DECREASED [None]
